FAERS Safety Report 10087970 (Version 1)
Quarter: 2014Q2

REPORT INFORMATION
  Report Type: Spontaneous
  Country: US (occurrence: US)
  Receive Date: 20140419
  Receipt Date: 20140419
  Transmission Date: 20141212
  Serious: No
  Sender: FDA-Public Use
  Company Number: US-009507513-1404USA009106

PATIENT
  Age: 52 Year
  Sex: Female

DRUGS (12)
  1. PEGINTRON [Suspect]
     Indication: HEPATITIS C
     Dosage: 150 MICROGRAM/0.5 ML, QW
     Route: 058
     Dates: start: 20140411
  2. REBETOL [Suspect]
     Dosage: 3 DF, BID
     Route: 048
     Dates: start: 20140411
  3. SOVALDI [Concomitant]
     Dosage: 1 DF, UNK
  4. GLIPIZIDE [Concomitant]
     Dosage: TWO EVERY A.M.
  5. TRAMADOL HYDROCHLORIDE [Concomitant]
     Dosage: 1 DF, Q8H PRN
  6. LEVOTHYROXINE SODIUM [Concomitant]
     Dosage: 1 DF, QAM
  7. SPIRONOLACT [Concomitant]
     Dosage: 2 DF, QD
  8. METFORMIN [Concomitant]
     Dosage: 1 DF, HS
  9. TRAZODONE HYDROCHLORIDE [Concomitant]
     Dosage: 1 DF, HS
  10. FUROSEMIDE [Concomitant]
     Dosage: 1 DF, QD
     Route: 048
  11. BUPROPION HYDROCHLORIDE [Concomitant]
     Dosage: 1 DF, BID
  12. LACTULOSE [Concomitant]
     Dosage: 10 CM/15OZ, 2 TO 4 TBS, QD

REACTIONS (6)
  - Headache [Unknown]
  - Pain [Unknown]
  - Chills [Unknown]
  - Pyrexia [Unknown]
  - Back pain [Unknown]
  - Insomnia [Unknown]
